FAERS Safety Report 7886030-6 (Version None)
Quarter: 2011Q4

REPORT INFORMATION
  Report Type: 
  Country: None (occurrence: None)
  Receive Date: 20111102
  Receipt Date: 20110706
  Transmission Date: 20120403
  Serious: No
  Sender: FDA-Public Use
  Company Number: US-AMGEN-USASP2011034713

PATIENT
  Sex: Male

DRUGS (3)
  1. PLAQUENIL [Concomitant]
     Dosage: UNK MG, UNK
  2. METHOTREXATE [Concomitant]
     Dosage: UNK MG, UNK
  3. ENBREL [Suspect]
     Indication: RHEUMATOID ARTHRITIS
     Dosage: 50 MG, QWK
     Dates: start: 20110101

REACTIONS (1)
  - CONTUSION [None]
